FAERS Safety Report 5276466-4 (Version None)
Quarter: 2007Q1

REPORT INFORMATION
  Report Type: 
  Country: None (occurrence: None)
  Receive Date: 20061213
  Receipt Date: 20031205
  Transmission Date: 20070707
  Serious: No
  Sender: FDA-Public Use
  Company Number: 2003UW16147

PATIENT
  Age: 52 Year
  Sex: Male

DRUGS (2)
  1. SEROQUEL [Suspect]
  2. TRILEPTAL [Concomitant]

REACTIONS (1)
  - PRIAPISM [None]
